FAERS Safety Report 4414778-4 (Version None)
Quarter: 2004Q3

REPORT INFORMATION
  Report Type: 
  Country: None (occurrence: None)
  Receive Date: 20040804
  Receipt Date: 20030922
  Transmission Date: 20050211
  Serious: No
  Sender: FDA-Public Use
  Company Number: US-BRISTOL-MYERS SQUIBB COMPANY-12389573

PATIENT
  Age: 59 Year
  Sex: Female
  Weight: 66 kg

DRUGS (9)
  1. GLUCOVANCE [Suspect]
     Indication: DIABETES MELLITUS
     Dosage: 2.5/500 = 1 DOSAGE FORM
     Route: 048
     Dates: start: 20021001
  2. LANOXIN [Concomitant]
  3. LASIX [Concomitant]
  4. IMDUR [Concomitant]
  5. COREG [Concomitant]
  6. NORVASC [Concomitant]
  7. ZANTAC [Concomitant]
  8. ZOLOFT [Concomitant]
  9. POTASSIUM [Concomitant]

REACTIONS (2)
  - DIARRHOEA [None]
  - WEIGHT DECREASED [None]
